FAERS Safety Report 4453933-4 (Version None)
Quarter: 2004Q3

REPORT INFORMATION
  Report Type: 
  Country: None (occurrence: None)
  Receive Date: 20040920
  Receipt Date: 20040907
  Transmission Date: 20050211
  Serious: Yes (Hospitalization)
  Sender: FDA-Public Use
  Company Number: PHBS2004US11847

PATIENT
  Age: 55 Year
  Sex: Male

DRUGS (4)
  1. METOPROLOL [Suspect]
  2. ASPIRIN [Suspect]
  3. SIMVASTATIN [Suspect]
  4. LISINOPRIL [Suspect]

REACTIONS (16)
  - BLOOD CREATININE INCREASED [None]
  - BLOOD UREA INCREASED [None]
  - BUNDLE BRANCH BLOCK LEFT [None]
  - CARDIAC MURMUR [None]
  - DYSPNOEA [None]
  - EJECTION FRACTION DECREASED [None]
  - ELECTROCARDIOGRAM QRS COMPLEX PROLONGED [None]
  - GALLOP RHYTHM PRESENT [None]
  - HYPOTENSION [None]
  - MITRAL VALVE INCOMPETENCE [None]
  - OEDEMA [None]
  - PULMONARY CONGESTION [None]
  - PULMONARY VASCULAR DISORDER [None]
  - RENAL VESSEL DISORDER [None]
  - URINE OUTPUT DECREASED [None]
  - VASODILATATION [None]
